FAERS Safety Report 6434686-7 (Version None)
Quarter: 2009Q4

REPORT INFORMATION
  Report Type: 
  Country: None (occurrence: None)
  Receive Date: 20091109
  Receipt Date: 20091109
  Transmission Date: 20100525
  Serious: Yes (Other)
  Sender: FDA-Public Use
  Company Number: None

PATIENT
  Age: 49 Year
  Sex: Female
  Weight: 56.6996 kg

DRUGS (1)
  1. ACTONEL [Suspect]
     Indication: OSTEOPOROSIS POSTMENOPAUSAL
     Dosage: 150 MG ONCE MONTHLY PO
     Route: 048
     Dates: start: 20091009, end: 20091009

REACTIONS (17)
  - BALANCE DISORDER [None]
  - BONE PAIN [None]
  - CHEST PAIN [None]
  - CHILLS [None]
  - DEPRESSION [None]
  - DIZZINESS [None]
  - DYSPNOEA [None]
  - EAR PAIN [None]
  - FATIGUE [None]
  - GAIT DISTURBANCE [None]
  - HEADACHE [None]
  - LETHARGY [None]
  - NAUSEA [None]
  - NECK PAIN [None]
  - PYREXIA [None]
  - TREMOR [None]
  - VOMITING [None]
